FAERS Safety Report 5647130-4 (Version None)
Quarter: 2008Q1

REPORT INFORMATION
  Report Type: 
  Country: None (occurrence: None)
  Receive Date: 20080228
  Receipt Date: 20080219
  Transmission Date: 20080703
  Serious: Yes (Other)
  Sender: FDA-Public Use
  Company Number: 2008-01466

PATIENT
  Age: 48 Year
  Sex: Female

DRUGS (1)
  1. TRIAMCINOLONE ACETONIDE [Suspect]
     Indication: DIABETIC RETINAL OEDEMA
     Dosage: 4 MG, A 6 MONTHS X 4, INTRAOCULAR
     Route: 031

REACTIONS (1)
  - MACULAR HOLE [None]
